FAERS Safety Report 5647408-4 (Version None)
Quarter: 2008Q1

REPORT INFORMATION
  Report Type: 
  Country: None (occurrence: None)
  Receive Date: 20080303
  Receipt Date: 20080225
  Transmission Date: 20080703
  Serious: Yes (Hospitalization)
  Sender: FDA-Public Use
  Company Number: FR-ASTRAZENECA-2008CG00312

PATIENT
  Age: 28715 Day
  Sex: Female

DRUGS (5)
  1. SYMBICORT [Suspect]
     Indication: ASTHMA
     Dosage: THREE INHALATIONS PER DAY
     Route: 055
     Dates: end: 20080113
  2. FELODIPINE [Suspect]
     Route: 048
     Dates: end: 20080113
  3. FLECAINIDE ACETATE [Suspect]
     Route: 048
     Dates: end: 20080113
  4. BI-PROFENID [Suspect]
     Indication: RHEUMATOID ARTHRITIS
     Route: 048
     Dates: end: 20080113
  5. PAROXETINE HCL [Suspect]
     Route: 048
     Dates: end: 20080113

REACTIONS (1)
  - CONDUCTION DISORDER [None]
